FAERS Safety Report 17472793 (Version 1)
Quarter: 2020Q1

REPORT INFORMATION
  Report Type: Spontaneous
  Country: US (occurrence: US)
  Receive Date: 20200217
  Receipt Date: 20200217
  Transmission Date: 20200409
  Serious: Yes (Other)
  Sender: FDA-Public Use
  Company Number: None

PATIENT
  Age: 53 Year
  Sex: Male
  Weight: 122.47 kg

DRUGS (1)
  1. DULOXETINE (DULOXETINE HCL 30MG CAP, EC) [Suspect]
     Active Substance: DULOXETINE HYDROCHLORIDE
     Indication: DEPRESSION
     Route: 048
     Dates: start: 20180529, end: 20180712

REACTIONS (1)
  - Urinary retention [None]

NARRATIVE: CASE EVENT DATE: 20180712
